FAERS Safety Report 18002869 (Version 1)
Quarter: 2020Q3

REPORT INFORMATION
  Report Type: Spontaneous
  Country: US (occurrence: US)
  Receive Date: 20200710
  Receipt Date: 20200710
  Transmission Date: 20201103
  Serious: Yes (Hospitalization, Other)
  Sender: FDA-Public Use
  Company Number: US-SA-2020SA175314

PATIENT

DRUGS (1)
  1. ELOXATIN [Suspect]
     Active Substance: OXALIPLATIN

REACTIONS (4)
  - Pharyngeal swelling [Unknown]
  - Dyspnoea [Unknown]
  - Glaucoma [Unknown]
  - Anaphylactic reaction [Unknown]
